FAERS Safety Report 5566298-1 (Version None)
Quarter: 2007Q4

REPORT INFORMATION
  Report Type: 
  Country: None (occurrence: None)
  Receive Date: 20071206
  Receipt Date: 20071120
  Transmission Date: 20080405
  Serious: No
  Sender: FDA-Public Use
  Company Number: 13989587

PATIENT
  Age: 60 Year
  Sex: Male

DRUGS (6)
  1. REVIA [Suspect]
     Dosage: 1 DOSAGE FORM ORAL
     Route: 048
     Dates: start: 20071119
  2. SEROPLEX (ESCITALOPRAM OXALATE) [Concomitant]
  3. ZOPICLONE (ZOPICLONE) [Concomitant]
  4. CETIRIZINE HCL [Concomitant]
  5. ALDACTONE [Concomitant]
  6. HYDROXIUM (ERGOLOID MESYLATES) [Concomitant]

REACTIONS (4)
  - APHASIA [None]
  - DYSPHAGIA [None]
  - PRURITUS [None]
  - TETANUS [None]
